FAERS Safety Report 17628785 (Version 1)
Quarter: 2020Q2

REPORT INFORMATION
  Report Type: Report from Study
  Country: US (occurrence: US)
  Receive Date: 20200406
  Receipt Date: 20200406
  Transmission Date: 20200713
  Serious: Yes (Other)
  Sender: FDA-Public Use
  Company Number: US-TEVA-2020-US-1220230

PATIENT
  Sex: Female

DRUGS (1)
  1. COPAXONE [Suspect]
     Active Substance: GLATIRAMER ACETATE
     Dosage: UNKNOWN FORM STRENGTH
     Dates: start: 20190502

REACTIONS (4)
  - Anxiety [Unknown]
  - Injection site pruritus [Recovered/Resolved]
  - Cardiac flutter [Recovered/Resolved]
  - Stress [Unknown]
